FAERS Safety Report 23362200 (Version 3)
Quarter: 2024Q1

REPORT INFORMATION
  Report Type: Spontaneous
  Country: AU (occurrence: AU)
  Receive Date: 20240103
  Receipt Date: 20240216
  Transmission Date: 20240410
  Serious: Yes (Hospitalization)
  Sender: FDA-Public Use
  Company Number: AU-BEH-2024167007

PATIENT
  Age: 79 Year
  Sex: Female
  Weight: 83 kg

DRUGS (1)
  1. PRIVIGEN [Suspect]
     Active Substance: HUMAN IMMUNOGLOBULIN G
     Indication: Product used for unknown indication
     Dosage: 40 GRAM, SINGLE
     Route: 042
     Dates: start: 20231219, end: 20231219

REACTIONS (1)
  - Body temperature increased [Recovered/Resolved]

NARRATIVE: CASE EVENT DATE: 20231219
